FAERS Safety Report 7726880-X (Version None)
Quarter: 2011Q3

REPORT INFORMATION
  Report Type: 
  Country: None (occurrence: None)
  Receive Date: 20110902
  Receipt Date: 20110803
  Transmission Date: 20111222
  Serious: Yes (Death, Hospitalization)
  Sender: FDA-Public Use
  Company Number: BR-MERCK-1108BRA00019

PATIENT
  Age: 49 Year
  Sex: Female

DRUGS (1)
  1. COZAAR [Suspect]
     Indication: HYPERTENSION
     Route: 065
     Dates: end: 20100101

REACTIONS (2)
  - SEPSIS [None]
  - PEMPHIGOID [None]
